FAERS Safety Report 4804495-0 (Version None)
Quarter: 2005Q4

REPORT INFORMATION
  Report Type: 
  Country: None (occurrence: None)
  Receive Date: 20051018
  Receipt Date: 20051018
  Transmission Date: 20060501
  Serious: Yes (Hospitalization)
  Sender: FDA-Public Use
  Company Number: None

PATIENT
  Age: 48 Year
  Sex: Female

DRUGS (1)
  1. MEGACE [Suspect]
     Indication: UTERINE HAEMORRHAGE
     Dosage: 40 MG ONCE DAILY PO
     Route: 048
     Dates: start: 20051013, end: 20051014

REACTIONS (3)
  - ANXIETY [None]
  - CONFUSIONAL STATE [None]
  - HALLUCINATION [None]
